FAERS Safety Report 7513362-3 (Version None)
Quarter: 2011Q2

REPORT INFORMATION
  Report Type: 
  Country: None (occurrence: None)
  Receive Date: 20110525
  Receipt Date: 20110525
  Transmission Date: 20111010
  Serious: Yes (Hospitalization)
  Sender: FDA-Public Use
  Company Number: None

PATIENT
  Age: 42 Year

DRUGS (2)
  1. BENZTROPINE MESYLATE [Suspect]
     Dosage: 2MG PO BID
     Route: 048
     Dates: start: 20090101
  2. CLOZAPINE [Suspect]
     Indication: SCHIZOPHRENIA
     Dosage: 300MG PO HS
     Dates: start: 20040101

REACTIONS (1)
  - ABDOMINAL PAIN [None]
